FAERS Safety Report 5562764-3 (Version None)
Quarter: 2007Q4

REPORT INFORMATION
  Report Type: 
  Country: None (occurrence: None)
  Receive Date: 20071217
  Receipt Date: 20071204
  Transmission Date: 20080405
  Serious: Yes (Death)
  Sender: FDA-Public Use
  Company Number: FR-AMGEN-UK244932

PATIENT
  Age: 55 Year
  Sex: Female

DRUGS (3)
  1. NEULASTA [Suspect]
     Indication: CHEMOTHERAPY
     Route: 058
     Dates: start: 20040827, end: 20050415
  2. TAXOTERE [Suspect]
     Route: 042
     Dates: start: 20040827, end: 20070415
  3. FARMORUBICIN [Suspect]
     Route: 042
     Dates: start: 20040827, end: 20050415

REACTIONS (1)
  - ACUTE LEUKAEMIA [None]
